FAERS Safety Report 7387651-X (Version None)
Quarter: 2011Q1

REPORT INFORMATION
  Report Type: 
  Country: None (occurrence: None)
  Receive Date: 20110331
  Receipt Date: 20110329
  Transmission Date: 20110831
  Serious: Yes (Death, Hospitalization)
  Sender: FDA-Public Use
  Company Number: US-PFIZER INC-US-WYE-H10588709

PATIENT
  Age: 56 Year
  Sex: Male

DRUGS (1)
  1. RELISTOR [Suspect]
     Indication: CONSTIPATION
     Dosage: 1 DF, SINGLE
     Route: 058
     Dates: start: 20090101, end: 20090101

REACTIONS (1)
  - RECTAL HAEMORRHAGE [None]
